FAERS Safety Report 12411380 (Version 1)
Quarter: 2016Q2

REPORT INFORMATION
  Report Type: Spontaneous
  Country: FR (occurrence: FR)
  Receive Date: 20160527
  Receipt Date: 20160527
  Transmission Date: 20160815
  Serious: Yes (Hospitalization)
  Sender: FDA-Public Use
  Company Number: FR-CONCORDIA PHARMACEUTICALS INC.-CO-UX-FR-2016-024

PATIENT
  Age: 49 Year
  Sex: Male

DRUGS (3)
  1. XATRAL [Suspect]
     Active Substance: ALFUZOSIN
     Indication: URINARY TRACT INFECTION
     Dates: start: 20160314, end: 20160428
  2. NORFLOXACIN [Suspect]
     Active Substance: NORFLOXACIN
     Indication: URINARY TRACT INFECTION
     Route: 048
     Dates: start: 20160314, end: 20160428
  3. KIVEXA [Concomitant]
     Active Substance: ABACAVIR SULFATE\LAMIVUDINE
     Indication: URINARY TRACT INFECTION
     Dates: start: 20160118, end: 20160428

REACTIONS (2)
  - Drug reaction with eosinophilia and systemic symptoms [Recovering/Resolving]
  - Hepatocellular injury [Recovering/Resolving]

NARRATIVE: CASE EVENT DATE: 20160418
